FAERS Safety Report 10077882 (Version 2)
Quarter: 2014Q2

REPORT INFORMATION
  Report Type: Spontaneous
  Country: US (occurrence: US)
  Receive Date: 20140415
  Receipt Date: 20140616
  Transmission Date: 20141212
  Serious: No
  Sender: FDA-Public Use
  Company Number: US-009507513-1403USA013078

PATIENT
  Age: 25 Year
  Sex: Female

DRUGS (2)
  1. METHYLPREDNISOLONE SODIUM SUCCINATE [Suspect]
     Indication: ENCEPHALOMYELITIS
     Dosage: 1000 MG DAILY
     Route: 042
  2. PREDNISONE [Suspect]
     Indication: ENCEPHALOMYELITIS
     Dosage: 1000 MG DAILY
     Route: 048

REACTIONS (1)
  - Exposure during pregnancy [Recovered/Resolved]
